FAERS Safety Report 17124335 (Version 2)
Quarter: 2019Q4

REPORT INFORMATION
  Report Type: Spontaneous
  Country: BR (occurrence: BR)
  Receive Date: 20191206
  Receipt Date: 20191220
  Transmission Date: 20200122
  Serious: Yes (Other)
  Sender: FDA-Public Use
  Company Number: BR-GLAXOSMITHKLINE-BR2019AMR195304

PATIENT
  Sex: Female

DRUGS (1)
  1. NUCALA [Suspect]
     Active Substance: MEPOLIZUMAB
     Indication: ASTHMA
     Dosage: 100 MG, UNK
     Dates: start: 20191021

REACTIONS (6)
  - Product dose omission [Unknown]
  - Spinal pain [Unknown]
  - Malaise [Unknown]
  - Anaphylactic shock [Unknown]
  - Headache [Unknown]
  - Dyspnoea [Unknown]
